FAERS Safety Report 10703296 (Version 5)
Quarter: 2015Q4

REPORT INFORMATION
  Report Type: Report from Study
  Country: US (occurrence: US)
  Receive Date: 20150112
  Receipt Date: 20151027
  Transmission Date: 20160304
  Serious: Yes (Hospitalization)
  Sender: FDA-Public Use
  Company Number: US-BIOGENIDEC-2015BI001763

PATIENT
  Age: 57 Year
  Sex: Male

DRUGS (2)
  1. TYSABRI [Suspect]
     Active Substance: NATALIZUMAB
     Indication: MULTIPLE SCLEROSIS
     Route: 042
     Dates: start: 20121107
  2. AMPYRA [Concomitant]
     Active Substance: DALFAMPRIDINE
     Indication: GAIT DISTURBANCE
     Route: 048

REACTIONS (13)
  - Somnolence [Recovered/Resolved]
  - Prescribed underdose [Recovered/Resolved]
  - Pulmonary embolism [Unknown]
  - Urinary tract infection [Recovered/Resolved]
  - Mobility decreased [Recovered/Resolved with Sequelae]
  - Depression [Recovered/Resolved]
  - Abasia [Recovered/Resolved]
  - Multiple sclerosis relapse [Recovered/Resolved]
  - Thrombosis [Unknown]
  - Gait disturbance [Not Recovered/Not Resolved]
  - Urinary retention [Not Recovered/Not Resolved]
  - Peripheral swelling [Not Recovered/Not Resolved]
  - Cellulitis [Recovered/Resolved]

NARRATIVE: CASE EVENT DATE: 2014
